FAERS Safety Report 6982422-8 (Version None)
Quarter: 2010Q3

REPORT INFORMATION
  Report Type: 
  Country: None (occurrence: None)
  Receive Date: 20100914
  Receipt Date: 20100108
  Transmission Date: 20110219
  Serious: No
  Sender: FDA-Public Use
  Company Number: US-PFIZER INC-2010003868

PATIENT
  Sex: Female
  Weight: 88 kg

DRUGS (3)
  1. LYRICA [Suspect]
     Indication: MUSCULOSKELETAL PAIN
     Dosage: 50 MG, 1X/DAY
     Route: 048
     Dates: start: 20100107
  2. LYRICA [Suspect]
     Indication: PAIN IN EXTREMITY
  3. ACTOS [Concomitant]

REACTIONS (2)
  - NEURALGIA [None]
  - PAIN IN EXTREMITY [None]
